FAERS Safety Report 21145030 (Version 7)
Quarter: 2022Q4

REPORT INFORMATION
  Report Type: Report from Study
  Country: US (occurrence: US)
  Receive Date: 20220729
  Receipt Date: 20221222
  Transmission Date: 20230112
  Serious: Yes (Other)
  Sender: FDA-Public Use
  Company Number: US-BRISTOL-MYERS SQUIBB COMPANY-2022-045489

PATIENT
  Age: 64 Year
  Sex: Male

DRUGS (4)
  1. OPDIVO [Suspect]
     Active Substance: NIVOLUMAB
     Indication: Malignant melanoma
     Dosage: Q4WEEKS, FIRST THREE INFUSIONS WERE OPDIVO+YERVOY
     Route: 042
  2. OPDIVO [Suspect]
     Active Substance: NIVOLUMAB
     Route: 042
     Dates: start: 20220808
  3. OPDIVO [Suspect]
     Active Substance: NIVOLUMAB
     Dates: start: 20221130
  4. YERVOY [Suspect]
     Active Substance: IPILIMUMAB
     Indication: Malignant melanoma
     Dosage: Q3WEEKS,FIRST THREE INFUSIONS WERE OPDIVO+YERVOY
     Route: 042

REACTIONS (16)
  - Alanine aminotransferase increased [Not Recovered/Not Resolved]
  - Aspartate aminotransferase increased [Not Recovered/Not Resolved]
  - Adrenal insufficiency [Recovered/Resolved]
  - Metastatic lymphoma [Not Recovered/Not Resolved]
  - Diabetes mellitus [Not Recovered/Not Resolved]
  - Immune-mediated dermatitis [Not Recovered/Not Resolved]
  - Vitamin B12 decreased [Unknown]
  - Hypothyroidism [Not Recovered/Not Resolved]
  - Pruritus [Not Recovered/Not Resolved]
  - Cellulitis [Unknown]
  - Rash [Unknown]
  - Confusional state [Unknown]
  - Headache [Unknown]
  - Incontinence [Unknown]
  - Dry skin [Unknown]
  - Hypophagia [Unknown]

NARRATIVE: CASE EVENT DATE: 20221201
